FAERS Safety Report 11455759 (Version 2)
Quarter: 2015Q3

REPORT INFORMATION
  Report Type: Spontaneous
  Country: FI (occurrence: FI)
  Receive Date: 20150903
  Receipt Date: 20150914
  Transmission Date: 20151125
  Serious: Yes (Death)
  Sender: FDA-Public Use
  Company Number: FI-TEVA-590881ISR

PATIENT
  Age: 92 Year
  Sex: Female

DRUGS (1)
  1. FENTANYL RATIOPHARM 12,5 MICROG [Suspect]
     Active Substance: FENTANYL
     Indication: PRODUCT USED FOR UNKNOWN INDICATION
     Route: 003

REACTIONS (1)
  - Death [Fatal]

NARRATIVE: CASE EVENT DATE: 20150822
